FAERS Safety Report 6155959-1 (Version None)
Quarter: 2009Q2

REPORT INFORMATION
  Report Type: 
  Country: None (occurrence: None)
  Receive Date: 20090415
  Receipt Date: 20090410
  Transmission Date: 20091009
  Serious: Yes (Other)
  Sender: FDA-Public Use
  Company Number: US-ASTRAZENECA-2008UW27388

PATIENT
  Age: 41 Year
  Sex: Male

DRUGS (3)
  1. SEROQUEL [Suspect]
     Indication: AFFECTIVE DISORDER
     Dosage: 600 MG, 800 MG
     Route: 048
     Dates: start: 20030501, end: 20070606
  2. SEROQUEL [Suspect]
     Indication: ANXIETY
     Dosage: 600 MG, 800 MG
     Route: 048
     Dates: start: 20030501, end: 20070606
  3. ZYPREXA [Concomitant]

REACTIONS (8)
  - CYST [None]
  - DIABETES MELLITUS [None]
  - DIABETIC NEUROPATHY [None]
  - EAR, NOSE AND THROAT EXAMINATION ABNORMAL [None]
  - PAIN IN EXTREMITY [None]
  - PANCREATITIS [None]
  - RESPIRATORY DISORDER [None]
  - SINUS DISORDER [None]
